FAERS Safety Report 4966485-7 (Version None)
Quarter: 2006Q2

REPORT INFORMATION
  Report Type: 
  Country: None (occurrence: None)
  Receive Date: 20060407
  Receipt Date: 20040716
  Transmission Date: 20061013
  Serious: Yes (Death, Hospitalization)
  Sender: FDA-Public Use
  Company Number: FR-SANOFI-SYNTHELABO-F01200402016

PATIENT
  Sex: Male
  Weight: 66 kg

DRUGS (2)
  1. OXALIPLATIN [Suspect]
     Indication: NON-SMALL CELL LUNG CANCER
     Route: 042
     Dates: start: 20040401, end: 20040401
  2. GEMCITABINE [Suspect]
     Dosage: 2112 MG ON DAY 1 AND DAY 8, EVERY 3 WEEKS.
     Route: 042
     Dates: start: 20040401, end: 20040401

REACTIONS (3)
  - CARDIAC FAILURE [None]
  - DISEASE PROGRESSION [None]
  - LEFT VENTRICULAR FAILURE [None]
